FAERS Safety Report 4315437-9 (Version None)
Quarter: 2004Q1

REPORT INFORMATION
  Report Type: 
  Country: None (occurrence: None)
  Receive Date: 20040309
  Receipt Date: 20040219
  Transmission Date: 20041129
  Serious: Yes (Hospitalization)
  Sender: FDA-Public Use
  Company Number: USA040259855

PATIENT
  Age: 9 Year
  Sex: Male
  Weight: 35 kg

DRUGS (1)
  1. STRATTERA [Suspect]
     Indication: ATTENTION DEFICIT/HYPERACTIVITY DISORDER
     Dosage: 25 MG/ 1 IN THE MORNING
     Dates: start: 20030101

REACTIONS (5)
  - COMA [None]
  - CONVULSION [None]
  - DROOLING [None]
  - LETHARGY [None]
  - RESPIRATORY ARREST [None]
